FAERS Safety Report 9290488 (Version 1)
Quarter: 2013Q2

REPORT INFORMATION
  Report Type: Spontaneous
  Country: US (occurrence: US)
  Receive Date: 20130514
  Receipt Date: 20130514
  Transmission Date: 20140414
  Serious: No
  Sender: FDA-Public Use
  Company Number: US-BRACCO-008346

PATIENT
  Age: 61 Year
  Sex: Male
  Weight: 114 kg

DRUGS (2)
  1. PROHANCE [Suspect]
     Indication: NUCLEAR MAGNETIC RESONANCE IMAGING BRAIN
     Route: 042
     Dates: start: 20120718, end: 20120718
  2. PROHANCE [Suspect]
     Indication: DEMENTIA ALZHEIMER^S TYPE
     Route: 042
     Dates: start: 20120718, end: 20120718

REACTIONS (1)
  - Throat tightness [Recovered/Resolved]
